FAERS Safety Report 17856912 (Version 11)
Quarter: 2024Q1

REPORT INFORMATION
  Report Type: Report from Study
  Country: CO (occurrence: CO)
  Receive Date: 20200603
  Receipt Date: 20240325
  Transmission Date: 20240410
  Serious: Yes (Hospitalization, Other)
  Sender: FDA-Public Use
  Company Number: NVSC2020CO088539

PATIENT
  Age: 82 Year
  Sex: Male
  Weight: 63 kg

DRUGS (10)
  1. TASIGNA [Suspect]
     Active Substance: NILOTINIB
     Indication: Chronic myeloid leukaemia
     Dosage: 800 MG, QD
     Route: 048
  2. TASIGNA [Suspect]
     Active Substance: NILOTINIB
     Dosage: 400 MG, QD
     Route: 048
  3. TASIGNA [Suspect]
     Active Substance: NILOTINIB
     Dosage: 600 MG, Q12H
     Route: 048
     Dates: end: 20200311
  4. TASIGNA [Suspect]
     Active Substance: NILOTINIB
     Dosage: 200 MG, EVERY 12 HOURS
     Route: 048
     Dates: start: 20180403
  5. TASIGNA [Suspect]
     Active Substance: NILOTINIB
     Dosage: 200 MG, Q12H (400 MG)
     Route: 048
     Dates: start: 20200311
  6. TASIGNA [Suspect]
     Active Substance: NILOTINIB
     Dosage: 400 MG, QD (2 TABLETS EVERY 12 HOURS)
     Route: 048
  7. TASIGNA [Suspect]
     Active Substance: NILOTINIB
     Dosage: UNK
     Route: 048
  8. LOSARTAN [Suspect]
     Active Substance: LOSARTAN
     Indication: Hypertension
     Dosage: UNK
     Route: 048
  9. LOSARTAN [Suspect]
     Active Substance: LOSARTAN
     Dosage: 50 MG, QD
     Route: 048
  10. LEVOTHYROXINE [Concomitant]
     Active Substance: LEVOTHYROXINE\LEVOTHYROXINE SODIUM
     Indication: Thyroid disorder
     Dosage: UNK UNK, QD
     Route: 048

REACTIONS (27)
  - Cardiac disorder [Unknown]
  - Illness [Unknown]
  - Discomfort [Not Recovered/Not Resolved]
  - Dizziness [Unknown]
  - General physical health deterioration [Unknown]
  - Tongue paralysis [Unknown]
  - Loss of consciousness [Unknown]
  - Syncope [Unknown]
  - Seizure [Unknown]
  - Cardiac murmur [Unknown]
  - Poor quality sleep [Unknown]
  - Dysarthria [Unknown]
  - Dysphagia [Unknown]
  - Glossitis [Unknown]
  - Renal cyst [Unknown]
  - Tongue disorder [Unknown]
  - Discouragement [Unknown]
  - Affective disorder [Unknown]
  - Head discomfort [Unknown]
  - Swelling face [Unknown]
  - Swelling [Unknown]
  - Tongue discolouration [Unknown]
  - Headache [Unknown]
  - Vertigo [Unknown]
  - Depressed mood [Unknown]
  - Dyspnoea [Unknown]
  - Off label use [Unknown]

NARRATIVE: CASE EVENT DATE: 20220206
